FAERS Safety Report 10995899 (Version 3)
Quarter: 2015Q3

REPORT INFORMATION
  Report Type: Report from Study
  Country: US (occurrence: US)
  Receive Date: 20150407
  Receipt Date: 20150724
  Transmission Date: 20151125
  Serious: Yes (Other)
  Sender: FDA-Public Use
  Company Number: US-ACTELION-A-US2015-115771

PATIENT
  Age: 9 Year
  Sex: Female

DRUGS (5)
  1. SILDENAFIL. [Concomitant]
     Active Substance: SILDENAFIL
     Dosage: 20 MG, TID
  2. ASA [Concomitant]
     Active Substance: ASPIRIN
     Dosage: 81 MG, QD
  3. LAMICTAL [Concomitant]
     Active Substance: LAMOTRIGINE
     Dosage: 25 MG, BID
  4. REMODULIN [Concomitant]
     Active Substance: TREPROSTINIL
     Dosage: 7 NG/KG, PER MIN
     Route: 042
  5. TRACLEER [Suspect]
     Active Substance: BOSENTAN
     Indication: PULMONARY ARTERIAL HYPERTENSION
     Dosage: 62.5 MG, BID
     Route: 048
     Dates: start: 201306

REACTIONS (3)
  - Epilepsy [Not Recovered/Not Resolved]
  - Glioma [Not Recovered/Not Resolved]
  - Seizure [Not Recovered/Not Resolved]
